FAERS Safety Report 5958091-2 (Version None)
Quarter: 2008Q4

REPORT INFORMATION
  Report Type: 
  Country: None (occurrence: None)
  Receive Date: 20081119
  Receipt Date: 20081113
  Transmission Date: 20090506
  Serious: Yes (Hospitalization)
  Sender: FDA-Public Use
  Company Number: B0546138A

PATIENT
  Age: 57 Year
  Sex: Female

DRUGS (2)
  1. AMOXIL [Suspect]
     Indication: GASTRIC ULCER
     Dosage: 250MG EIGHT TIMES PER DAY
     Route: 048
     Dates: start: 20081107
  2. CLARITHROMYCIN [Concomitant]

REACTIONS (2)
  - CIRCULATORY COLLAPSE [None]
  - INSOMNIA [None]
